FAERS Safety Report 17041485 (Version 1)
Quarter: 2019Q4

REPORT INFORMATION
  Report Type: Spontaneous
  Country: GB (occurrence: GB)
  Receive Date: 20191118
  Receipt Date: 20191118
  Transmission Date: 20200122
  Serious: Yes (Other)
  Sender: FDA-Public Use
  Company Number: GB-TEVA-2019-GB-1137252

PATIENT
  Age: 55 Year
  Sex: Female

DRUGS (1)
  1. PREGABALIN. [Suspect]
     Active Substance: PREGABALIN
     Indication: GENERALISED ANXIETY DISORDER
     Dosage: 150 MILLIGRAM
     Route: 048
     Dates: end: 20180207

REACTIONS (4)
  - Muscle atrophy [Not Recovered/Not Resolved]
  - Exercise tolerance decreased [Unknown]
  - Anxiety disorder [Unknown]
  - Asthenia [Unknown]
